FAERS Safety Report 19397357 (Version 1)
Quarter: 2021Q2

REPORT INFORMATION
  Report Type: Spontaneous
  Country: US (occurrence: US)
  Receive Date: 20210609
  Receipt Date: 20210609
  Transmission Date: 20210717
  Serious: Yes (Death)
  Sender: FDA-Public Use
  Company Number: US-ROCHE-2845528

PATIENT
  Sex: Female
  Weight: 53.4 kg

DRUGS (11)
  1. PREDNISONE. [Concomitant]
     Active Substance: PREDNISONE
  2. FERROUS SULFATE. [Concomitant]
     Active Substance: FERROUS SULFATE
  3. LEVETIRACETAM. [Concomitant]
     Active Substance: LEVETIRACETAM
  4. PANTOPRAZOLE [Concomitant]
     Active Substance: PANTOPRAZOLE
  5. MYRBETRIQ [Concomitant]
     Active Substance: MIRABEGRON
  6. XOLAIR [Suspect]
     Active Substance: OMALIZUMAB
     Indication: URTICARIA
     Dosage: 300 MG/ML
     Route: 058
     Dates: start: 20180318
  7. BETHANECHOL [Concomitant]
     Active Substance: BETHANECHOL
  8. COLESEVELAM [Concomitant]
     Active Substance: COLESEVELAM
  9. PRIMIDONE. [Concomitant]
     Active Substance: PRIMIDONE
  10. TROSPIUM CHLORIDE. [Concomitant]
     Active Substance: TROSPIUM CHLORIDE
  11. TERAZOSIN [Concomitant]
     Active Substance: TERAZOSIN HYDROCHLORIDE

REACTIONS (1)
  - Death [Fatal]
